FAERS Safety Report 4520346-6 (Version None)
Quarter: 2004Q4

REPORT INFORMATION
  Report Type: 
  Country: None (occurrence: None)
  Receive Date: 20041207
  Receipt Date: 20041129
  Transmission Date: 20050328
  Serious: Yes (Death, Hospitalization)
  Sender: FDA-Public Use
  Company Number: SE-GLAXOSMITHKLINE-B0358861A

PATIENT
  Age: 62 Year
  Sex: Male

DRUGS (1)
  1. HYCAMTIN [Suspect]
     Route: 065
     Dates: start: 20040831, end: 20040906

REACTIONS (6)
  - ADVERSE DRUG REACTION [None]
  - AGRANULOCYTOSIS [None]
  - DYSPNOEA [None]
  - NEUTROPHILIA [None]
  - PNEUMONIA [None]
  - PYREXIA [None]
